FAERS Safety Report 10228131 (Version 1)
Quarter: 2014Q1

REPORT INFORMATION
  Report Type: Spontaneous
  Country: US (occurrence: None)
  Receive Date: 20140306
  Receipt Date: 20140306
  Transmission Date: 20141002
  Serious: Yes (Hospitalization)
  Sender: FDA-Public Use
  Company Number: 163-21880-13053225

PATIENT
  Age: 85 Year
  Sex: Male

DRUGS (12)
  1. REVLIMID(LENALIDOMIDE)(15 MILLIGRAM, CAPSULES) [Suspect]
     Indication: PLASMA CELL MYELOMA
     Route: 048
     Dates: start: 201212, end: 2013
  2. ASA(ACTYLSALICYLIC ACID) [Concomitant]
  3. DECADRON(DEXAMETHASONE) [Concomitant]
  4. PROSCAR(FINASTERIDE) [Concomitant]
  5. MIROZIDE(HYDROCHLOROTHIAZIDE) [Concomitant]
  6. IMUDR(ISOSORBIDE MONONITRATE) [Concomitant]
  7. METOPROLOL(METOPROLOL) [Concomitant]
  8. DILANTIN(PHENYTOIN SODIUM) [Concomitant]
  9. ACAPRIL(ENALAPRIL MALEATE) [Concomitant]
  10. LOSARTAN(LOSARTAN) [Concomitant]
  11. PRILOSECT (OMEPRAZOLE) [Concomitant]
  12. COUMADIN(WARFARIN SODIUM) [Concomitant]

REACTIONS (3)
  - Fall [None]
  - Rib fracture [None]
  - Hearing impaired [None]
